FAERS Safety Report 11888752 (Version 1)
Quarter: 2016Q1

REPORT INFORMATION
  Report Type: Spontaneous
  Country: US (occurrence: None)
  Receive Date: 20160104
  Receipt Date: 20160104
  Transmission Date: 20160526
  Serious: Yes (Other)
  Sender: FDA-Public Use
  Company Number: None

PATIENT
  Age: 68 Year
  Sex: Female
  Weight: 58.06 kg

DRUGS (1)
  1. HYQVIA [Suspect]
     Active Substance: HUMAN IMMUNOGLOBULIN G\HYALURONIDASE RECOMBINANT HUMAN
     Indication: IMMUNODEFICIENCY COMMON VARIABLE
     Dosage: 30 GRAMS?Q4W?
     Route: 058
     Dates: start: 20151229

REACTIONS (5)
  - Abdominal distension [None]
  - Erythema [None]
  - Tenderness [None]
  - Feeling hot [None]
  - Swelling [None]

NARRATIVE: CASE EVENT DATE: 20151229
